FAERS Safety Report 9228507 (Version 1)
Quarter: 2013Q2

REPORT INFORMATION
  Report Type: Spontaneous
  Country: US (occurrence: None)
  Receive Date: 20130411
  Receipt Date: 20130411
  Transmission Date: 20140414
  Serious: Yes (Hospitalization)
  Sender: FDA-Public Use
  Company Number: None

PATIENT
  Age: 86 Year
  Sex: Male
  Weight: 100 kg

DRUGS (16)
  1. VALPORIC ACID [Suspect]
     Indication: BIPOLAR DISORDER
     Dosage: CHRONIC WITH RECENT INCREASED
     Route: 048
  2. ZYPREXA [Suspect]
     Indication: BIPOLAR DISORDER
     Dosage: CHRONIC WITH RECENT INCREASED
     Route: 048
  3. SENNA [Concomitant]
  4. MIRAPLEX [Concomitant]
  5. LORATADINE [Concomitant]
  6. LASIX [Concomitant]
  7. AMBIEN [Concomitant]
  8. DILTIMZEM [Concomitant]
  9. DIGOXIN [Concomitant]
  10. FLOMAX [Concomitant]
  11. CIPRO [Concomitant]
  12. WARFARIN [Concomitant]
  13. TRAZODONE [Concomitant]
  14. SIMVASTATIN [Concomitant]
  15. MOTRIN [Concomitant]
  16. MVI [Concomitant]

REACTIONS (10)
  - Confusional state [None]
  - Fatigue [None]
  - Asthenia [None]
  - Dysarthria [None]
  - Delirium [None]
  - Mental status changes [None]
  - Renal failure acute [None]
  - Pyrexia [None]
  - Troponin increased [None]
  - Ejection fraction decreased [None]
